FAERS Safety Report 8923351 (Version 1)
Quarter: 2012Q4

REPORT INFORMATION
  Report Type: 
  Country: US (occurrence: US)
  Receive Date: 20121123
  Receipt Date: 20121123
  Transmission Date: 20130627
  Serious: Yes (Other)
  Sender: FDA-Public Use
  Company Number: US-JNJFOC-20121108693

PATIENT
  Age: 47 Year
  Sex: Female
  Weight: 61.24 kg

DRUGS (2)
  1. ROLAIDS [Suspect]
     Indication: FLATULENCE
     Route: 048
     Dates: start: 20121108, end: 20121108
  2. ROLAIDS [Suspect]
     Indication: ABDOMINAL DISCOMFORT
     Route: 048
     Dates: start: 20121108, end: 20121108

REACTIONS (5)
  - Hypersensitivity [Recovering/Resolving]
  - Expired drug administered [Unknown]
  - Off label use [Unknown]
  - Eye swelling [None]
  - Dyspnoea [None]
